FAERS Safety Report 19589226 (Version 2)
Quarter: 2022Q2

REPORT INFORMATION
  Report Type: Spontaneous
  Country: CA (occurrence: None)
  Receive Date: 20210721
  Receipt Date: 20220401
  Transmission Date: 20220720
  Serious: Yes (Life-Threatening, Hospitalization, Other)
  Sender: FDA-Public Use
  Company Number: 2021A624910

PATIENT
  Age: 52 Year
  Sex: Female

DRUGS (16)
  1. DAPAGLIFLOZIN [Suspect]
     Active Substance: DAPAGLIFLOZIN
     Indication: Type 2 diabetes mellitus
     Route: 048
     Dates: end: 20210217
  2. CELECOXIB [Suspect]
     Active Substance: CELECOXIB
     Indication: Carpal tunnel syndrome
     Route: 048
     Dates: end: 20210217
  3. METFORMIN [Suspect]
     Active Substance: METFORMIN HYDROCHLORIDE
     Indication: Type 2 diabetes mellitus
     Route: 048
  4. METFORMIN [Suspect]
     Active Substance: METFORMIN HYDROCHLORIDE
     Indication: Type 2 diabetes mellitus
     Route: 048
  5. SODIUM BICARBONATE [Suspect]
     Active Substance: SODIUM BICARBONATE
     Indication: Metabolic abnormality management
     Route: 065
     Dates: start: 20210218, end: 20210219
  6. VICTOZA [Suspect]
     Active Substance: LIRAGLUTIDE
     Indication: Type 2 diabetes mellitus
     Route: 058
     Dates: end: 20210217
  7. ACETAMINOPHEN WITH CODEINE AND CAFFEINE [Concomitant]
     Dosage: ACETAMINOPHEN 300MG/ CODEINE 30 MG/ CAFFEINE 15 MG
     Route: 048
  8. VITAMIN C [Concomitant]
     Active Substance: ASCORBIC ACID
  9. CHOLECALCIFEROL [Concomitant]
     Active Substance: CHOLECALCIFEROL
     Dosage: 1000 UNITS
     Route: 048
  10. FERROUS SULFATE [Concomitant]
     Active Substance: FERROUS SULFATE
     Route: 048
  11. JUBLIA [Concomitant]
     Active Substance: EFINACONAZOLE
     Dosage: 10% CREAM APPLY TO AFFECTED AREA DAILY
  12. LANSOPRAZOLE [Concomitant]
     Active Substance: LANSOPRAZOLE
  13. LORAZEPAM [Concomitant]
     Active Substance: LORAZEPAM
  14. QUETIAPINE [Concomitant]
     Active Substance: QUETIAPINE
     Route: 048
  15. ROSUVASTATIN [Concomitant]
     Active Substance: ROSUVASTATIN
     Route: 058
  16. TEMAZEPAM [Concomitant]
     Active Substance: TEMAZEPAM
     Route: 048

REACTIONS (10)
  - Abdominal pain [Recovered/Resolved]
  - Acute kidney injury [Recovered/Resolved]
  - Asthenia [Recovered/Resolved]
  - Dehydration [Recovered/Resolved]
  - Euglycaemic diabetic ketoacidosis [Recovered/Resolved]
  - Lactic acidosis [Recovered/Resolved]
  - Metabolic alkalosis [Recovered/Resolved]
  - Nausea [Recovered/Resolved]
  - Renal failure [Recovered/Resolved]
  - Vomiting [Recovered/Resolved]
